FAERS Safety Report 25311459 (Version 1)
Quarter: 2025Q2

REPORT INFORMATION
  Report Type: Spontaneous
  Country: ES (occurrence: ES)
  Receive Date: 20250514
  Receipt Date: 20250514
  Transmission Date: 20250716
  Serious: Yes (Life-Threatening, Hospitalization)
  Sender: DR REDDYS
  Company Number: None

PATIENT
  Age: 71 Year
  Sex: Female

DRUGS (2)
  1. TICAGRELOR [Suspect]
     Active Substance: TICAGRELOR
     Indication: Acute myocardial infarction
     Dosage: 90MG/12H/90 MG 56 TABLETS
     Route: 048
     Dates: start: 20241016, end: 20250321
  2. ASPIRIN [Suspect]
     Active Substance: ASPIRIN
     Indication: Peripheral venous disease
     Dosage: 100MG/24H/?100 MG GASTRO-RESISTANT TABLETS EFG, 60 TABLETS
     Route: 048
     Dates: start: 20240227

REACTIONS (2)
  - Intestinal haemorrhage [Recovered/Resolved]
  - Anaemia [Recovering/Resolving]

NARRATIVE: CASE EVENT DATE: 20250321
